FAERS Safety Report 6343713-7 (Version None)
Quarter: 2009Q3

REPORT INFORMATION
  Report Type: 
  Country: None (occurrence: None)
  Receive Date: 20090908
  Receipt Date: 20090904
  Transmission Date: 20100115
  Serious: Yes (Hospitalization)
  Sender: FDA-Public Use
  Company Number: A0805568A

PATIENT
  Sex: Female
  Weight: 55.2 kg

DRUGS (3)
  1. LAPATINIB [Suspect]
     Dosage: 1250MG PER DAY
     Route: 048
     Dates: start: 20080317
  2. CAPECITABINE [Suspect]
     Dosage: 2600MG PER DAY
     Route: 048
     Dates: start: 20080317
  3. ZOMETA [Concomitant]
     Route: 042
     Dates: start: 20080101

REACTIONS (1)
  - CONVULSION [None]
